FAERS Safety Report 18991468 (Version 1)
Quarter: 2021Q1

REPORT INFORMATION
  Report Type: Spontaneous
  Country: FR (occurrence: FR)
  Receive Date: 20210310
  Receipt Date: 20210310
  Transmission Date: 20210420
  Serious: Yes (Life-Threatening)
  Sender: FDA-Public Use
  Company Number: FR-ACCORD-219277

PATIENT
  Age: 55 Year
  Sex: Female
  Weight: 74 kg

DRUGS (11)
  1. CARBOPLATIN ACCORD [Suspect]
     Active Substance: CARBOPLATIN
     Indication: SQUAMOUS CELL CARCINOMA OF THE CERVIX
     Dosage: STRENGTH: 10 MG / ML, 500 MG ON D1. C1D1 ON 21/12/2020
     Route: 041
     Dates: start: 20210112, end: 20210112
  2. COVERSYL [Concomitant]
     Active Substance: PERINDOPRIL
     Dosage: STRENGTH: 10 MG
  3. VERSATIS [Concomitant]
     Active Substance: LIDOCAINE
     Dosage: 5%
  4. LOVENOX [Concomitant]
     Active Substance: ENOXAPARIN SODIUM
  5. AMLOR [Concomitant]
     Active Substance: AMLODIPINE BESYLATE
     Dosage: 10 MG
  6. LYRICA [Concomitant]
     Active Substance: PREGABALIN
  7. GEMCITABINE SANDOZ [Suspect]
     Active Substance: GEMCITABINE\GEMCITABINE HYDROCHLORIDE
     Indication: SQUAMOUS CELL CARCINOMA OF THE CERVIX
     Dosage: STRENGTH: 40 MG / ML ,1800 MG ON D1. C1D1 ON 21/12/2020
     Route: 041
     Dates: start: 20210112, end: 20210112
  8. MAGNESPASMYL [Concomitant]
     Dosage: STRENGTH: 47.4 MG
  9. XANAX [Concomitant]
     Active Substance: ALPRAZOLAM
     Dosage: 0.25 MG, SCORED TABLET
  10. LAROXYL [Concomitant]
     Active Substance: AMITRIPTYLINE HYDROCHLORIDE
     Dosage: STRENGTH: 40 MG / ML
  11. DUROGESIC [Concomitant]
     Active Substance: FENTANYL

REACTIONS (4)
  - Muscle twitching [Unknown]
  - Seizure [Not Recovered/Not Resolved]
  - Coma [Not Recovered/Not Resolved]
  - Cardio-respiratory arrest [Recovered/Resolved with Sequelae]

NARRATIVE: CASE EVENT DATE: 20210112
